FAERS Safety Report 24384889 (Version 2)
Quarter: 2024Q4

REPORT INFORMATION
  Report Type: Spontaneous
  Country: JP (occurrence: JP)
  Receive Date: 20241001
  Receipt Date: 20241017
  Transmission Date: 20250115
  Serious: Yes (Death)
  Sender: ELI LILLY AND COMPANY
  Company Number: JP-ELI_LILLY_AND_COMPANY-JP202407011472

PATIENT
  Age: 63 Year
  Sex: Male
  Weight: 29 kg

DRUGS (4)
  1. RETEVMO [Suspect]
     Active Substance: SELPERCATINIB
     Indication: Thyroid cancer stage IV
     Dosage: 320 MG, DAILY
     Route: 050
     Dates: start: 20240408, end: 20240421
  2. FENTANYL [Concomitant]
     Active Substance: FENTANYL
     Indication: Cancer pain
     Dosage: 1200 UG, DAILY
     Route: 042
     Dates: start: 20240408, end: 20240415
  3. FENTANYL [Concomitant]
     Active Substance: FENTANYL
     Indication: Cancer pain
     Dosage: 4 MG, DAILY
     Route: 062
     Dates: start: 20240416
  4. BETAMETHASONE SODIUM PHOSPHATE [Concomitant]
     Active Substance: BETAMETHASONE SODIUM PHOSPHATE
     Indication: Malaise
     Dosage: 2 MG, DAILY
     Route: 042
     Dates: start: 20240408

REACTIONS (5)
  - Pneumonia aspiration [Fatal]
  - Lung abscess [Fatal]
  - Off label use [Unknown]
  - Hepatic function abnormal [Recovering/Resolving]
  - Hypothyroidism [Not Recovered/Not Resolved]

NARRATIVE: CASE EVENT DATE: 20240422
